FAERS Safety Report 4519372-2 (Version None)
Quarter: 2004Q4

REPORT INFORMATION
  Report Type: 
  Country: None (occurrence: None)
  Receive Date: 20041202
  Receipt Date: 20041119
  Transmission Date: 20050328
  Serious: Yes (Hospitalization)
  Sender: FDA-Public Use
  Company Number: MK200411-0203-1

PATIENT
  Age: 37 Year
  Sex: Female

DRUGS (2)
  1. TRAMADOL HCL [Suspect]
     Dosage: 2000 MG, ONCE
  2. NITRAZEPAM [Suspect]

REACTIONS (33)
  - ASTHENIA [None]
  - ATRIOVENTRICULAR BLOCK FIRST DEGREE [None]
  - BLOOD BICARBONATE DECREASED [None]
  - BLOOD PH DECREASED [None]
  - BLOOD PHOSPHORUS INCREASED [None]
  - BLOOD POTASSIUM INCREASED [None]
  - CARDIAC DISORDER [None]
  - CARDIAC FAILURE [None]
  - CLONUS [None]
  - CYANOSIS [None]
  - DECREASED ACTIVITY [None]
  - DISORIENTATION [None]
  - DYSARTHRIA [None]
  - ELECTROCARDIOGRAM ST SEGMENT ELEVATION [None]
  - ELECTROCARDIOGRAM T WAVE INVERSION [None]
  - EMOTIONAL DISTRESS [None]
  - HEART SOUNDS ABNORMAL [None]
  - HYPERREFLEXIA [None]
  - HYPERTONIA [None]
  - HYPOTENSION [None]
  - JUGULAR VEIN DISTENSION [None]
  - LIVER TENDERNESS [None]
  - MYALGIA [None]
  - MYDRIASIS [None]
  - MYOCLONUS [None]
  - OVERDOSE [None]
  - PCO2 INCREASED [None]
  - PO2 INCREASED [None]
  - RHABDOMYOLYSIS [None]
  - SOMNOLENCE [None]
  - SYNCOPE [None]
  - TREMOR [None]
  - TRICUSPID VALVE INCOMPETENCE [None]
